FAERS Safety Report 4379662-3 (Version None)
Quarter: 2004Q2

REPORT INFORMATION
  Report Type: 
  Country: None (occurrence: None)
  Receive Date: 20040614
  Receipt Date: 20040602
  Transmission Date: 20050107
  Serious: Yes (Death)
  Sender: FDA-Public Use
  Company Number: 163-20785-04040629

PATIENT
  Age: 83 Year
  Sex: Male

DRUGS (1)
  1. THALOMID [Suspect]
     Indication: MYELODYSPLASTIC SYNDROME
     Dosage: 50 MG DAILY ORAL
     Route: 048
     Dates: start: 20040204, end: 20040308

REACTIONS (3)
  - ASBESTOSIS [None]
  - DYSPNOEA [None]
  - DYSPNOEA EXERTIONAL [None]
